FAERS Safety Report 5842932-3 (Version None)
Quarter: 2008Q3

REPORT INFORMATION
  Report Type: 
  Country: None (occurrence: None)
  Receive Date: 20080811
  Receipt Date: 20080724
  Transmission Date: 20090109
  Serious: Yes (Hospitalization)
  Sender: FDA-Public Use
  Company Number: 2008BI018805

PATIENT
  Age: 54 Year
  Sex: Female
  Weight: 50 kg

DRUGS (1)
  1. AVONEX [Suspect]
     Indication: RELAPSING-REMITTING MULTIPLE SCLEROSIS
     Dosage: 30 UG QW IM
     Route: 030
     Dates: start: 20080709

REACTIONS (6)
  - CHILLS [None]
  - FATIGUE [None]
  - MENTAL DISORDER [None]
  - MOBILITY DECREASED [None]
  - MUSCLE SPASMS [None]
  - NAUSEA [None]
